FAERS Safety Report 9162397 (Version 1)
Quarter: 2013Q1

REPORT INFORMATION
  Report Type: Spontaneous
  Country: US (occurrence: US)
  Receive Date: 20130314
  Receipt Date: 20130314
  Transmission Date: 20140127
  Serious: No
  Sender: FDA-Public Use
  Company Number: US-PFIZER INC-2013086228

PATIENT
  Age: 45 Year
  Sex: Female
  Weight: 67.57 kg

DRUGS (4)
  1. NEURONTIN [Suspect]
     Indication: NEURALGIA
     Dosage: 300 MG, 1X/DAY
     Dates: start: 201204
  2. NEURONTIN [Suspect]
     Dosage: 600 MG, 1X/DAY
     Dates: end: 201302
  3. VICODIN [Concomitant]
     Indication: BACK PAIN
     Dosage: UNK
  4. VALIUM [Concomitant]
     Indication: MUSCLE SPASMS
     Dosage: 5 MG, 2X/DAY

REACTIONS (1)
  - Drug effect incomplete [Unknown]
